FAERS Safety Report 6891381-8 (Version None)
Quarter: 2010Q3

REPORT INFORMATION
  Report Type: 
  Country: None (occurrence: None)
  Receive Date: 20100731
  Receipt Date: 20070316
  Transmission Date: 20110219
  Serious: No
  Sender: FDA-Public Use
  Company Number: US-PFIZER INC-2007021754

PATIENT
  Sex: Male
  Weight: 83.91 kg

DRUGS (4)
  1. DEPO-MEDROL [Suspect]
     Indication: ARTHRALGIA
     Dates: start: 20070305
  2. NARDIL [Concomitant]
     Indication: DEPRESSION
  3. VALIUM [Concomitant]
  4. ATIVAN [Concomitant]

REACTIONS (10)
  - ANXIETY [None]
  - DEPRESSED MOOD [None]
  - EUPHORIC MOOD [None]
  - EYE PAIN [None]
  - HEADACHE [None]
  - HYPERHIDROSIS [None]
  - MOOD SWINGS [None]
  - PAIN [None]
  - SEDATION [None]
  - VISION BLURRED [None]
